FAERS Safety Report 12395816 (Version 2)
Quarter: 2016Q3

REPORT INFORMATION
  Report Type: Spontaneous
  Country: US (occurrence: US)
  Receive Date: 20160523
  Receipt Date: 20160901
  Transmission Date: 20161109
  Serious: Yes (Hospitalization, Other)
  Sender: FDA-Public Use
  Company Number: US-RELYPSA-RLY2016000768

PATIENT
  Age: 52 Year
  Sex: Female

DRUGS (5)
  1. CARVEDILOL. [Concomitant]
     Active Substance: CARVEDILOL
  2. NEURONTIN [Concomitant]
     Active Substance: GABAPENTIN
  3. RENVELA [Concomitant]
     Active Substance: SEVELAMER CARBONATE
  4. LEVEMIR [Concomitant]
     Active Substance: INSULIN DETEMIR
  5. VELTASSA [Suspect]
     Active Substance: PATIROMER
     Indication: HYPERKALAEMIA
     Dosage: 8.4 G, QD
     Route: 048
     Dates: start: 20160506

REACTIONS (3)
  - Bronchitis [Unknown]
  - Hyperkalaemia [Unknown]
  - Dialysis related complication [Unknown]

NARRATIVE: CASE EVENT DATE: 201605
